FAERS Safety Report 7793213-2 (Version None)
Quarter: 2011Q4

REPORT INFORMATION
  Report Type: 
  Country: None (occurrence: None)
  Receive Date: 20111003
  Receipt Date: 20110926
  Transmission Date: 20120403
  Serious: Yes (Other)
  Sender: FDA-Public Use
  Company Number: FR-ELI_LILLY_AND_COMPANY-FR201109007479

PATIENT
  Age: 63 Year
  Sex: Male

DRUGS (1)
  1. BYETTA [Suspect]
     Dosage: 10 UG, UNK
     Route: 058
     Dates: start: 20090101

REACTIONS (1)
  - SYNCOPE [None]
